FAERS Safety Report 9076123 (Version 1)
Quarter: 2013Q1

REPORT INFORMATION
  Report Type: Report from Study
  Country: US (occurrence: US)
  Receive Date: 20130129
  Receipt Date: 20130129
  Transmission Date: 20140127
  Serious: No
  Sender: FDA-Public Use
  Company Number: US-ABBOTT-12P-163-0935737-00

PATIENT
  Age: 49 Year
  Sex: Female

DRUGS (9)
  1. HUMIRA 40 MG/0.8 ML PEN [Suspect]
     Indication: PSORIATIC ARTHROPATHY
     Dates: start: 201202
  2. AMBIEN [Concomitant]
     Indication: INSOMNIA
     Dosage: AT BEDTIME
  3. TRAZODONE [Concomitant]
     Indication: INSOMNIA
     Dosage: AT BEDTIME
  4. SOMA [Concomitant]
     Indication: ARTHRALGIA
     Dosage: 1-2 TABS ONCE A DAY
  5. XANAX [Concomitant]
     Indication: ANXIETY
     Dosage: 1-3 TABS ONCE PER DAY
  6. LISINOPRIL [Concomitant]
     Indication: BLOOD PRESSURE
     Dosage: 1/2-1 TAB A DAY
  7. PRAVASTATIN [Concomitant]
     Indication: BLOOD CHOLESTEROL INCREASED
  8. LEVOTHYROXINE [Concomitant]
     Indication: HYPOTHYROIDISM
  9. ZYRTEC [Concomitant]
     Indication: HYPERSENSITIVITY

REACTIONS (2)
  - Medication error [Recovered/Resolved]
  - Injection site pain [Recovered/Resolved]
